FAERS Safety Report 19798806 (Version 1)
Quarter: 2021Q3

REPORT INFORMATION
  Report Type: Spontaneous
  Country: US (occurrence: US)
  Receive Date: 20210907
  Receipt Date: 20210907
  Transmission Date: 20211014
  Serious: No
  Sender: FDA-Public Use
  Company Number: US-PFIZER INC-2021485184

PATIENT
  Age: 55 Year
  Sex: Female

DRUGS (4)
  1. IRON SUCROSE [Suspect]
     Active Substance: IRON SUCROSE
     Indication: ANAEMIA
     Dosage: UNK
  2. CODEINE [Suspect]
     Active Substance: CODEINE
     Dosage: UNK
  3. TESSALON [Suspect]
     Active Substance: BENZONATATE
     Indication: COUGH
     Dosage: UNK
  4. PENICILLIN NOS [Suspect]
     Active Substance: PENICILLIN
     Dosage: UNK

REACTIONS (1)
  - Hypersensitivity [Unknown]
